FAERS Safety Report 9605659 (Version 3)
Quarter: 2013Q4

REPORT INFORMATION
  Report Type: Report from Study
  Country: BR (occurrence: BR)
  Receive Date: 20131008
  Receipt Date: 20131101
  Transmission Date: 20140711
  Serious: Yes (Other)
  Sender: FDA-Public Use
  Company Number: PHHY2012BR121796

PATIENT
  Sex: Female

DRUGS (2)
  1. DIOVAN [Suspect]
     Indication: HYPERTENSION
     Dosage: 1 DF (320MG), DAILY
     Route: 048
     Dates: start: 2010, end: 20121203
  2. MULTIVITAMINS W/MINERALS [Concomitant]
     Indication: VITAMIN SUPPLEMENTATION
     Dosage: 1 DF, A DAY

REACTIONS (6)
  - Pre-eclampsia [Unknown]
  - Premature labour [Unknown]
  - Renal impairment [Recovered/Resolved]
  - Anuria [Recovered/Resolved]
  - Blood pressure increased [Recovered/Resolved]
  - Maternal exposure during pregnancy [Unknown]
